FAERS Safety Report 16286422 (Version 3)
Quarter: 2019Q2

REPORT INFORMATION
  Report Type: Not Available
  Country: US (occurrence: US)
  Receive Date: 20190508
  Receipt Date: 20190604
  Transmission Date: 20190711
  Serious: Yes (Hospitalization)
  Sender: FDA-Public Use
  Company Number: US-NEUROCRINE BIOSCIENCES INC.-2019NBI01119

PATIENT
  Age: 21 Year
  Sex: Female

DRUGS (7)
  1. INGREZZA [Suspect]
     Active Substance: VALBENAZINE
     Route: 048
     Dates: start: 20171116
  2. LAMICTAL [Concomitant]
     Active Substance: LAMOTRIGINE
  3. TRIHEXYPHENIDYL [Concomitant]
     Active Substance: TRIHEXYPHENIDYL
     Indication: TARDIVE DYSKINESIA
  4. INGREZZA [Suspect]
     Active Substance: VALBENAZINE
     Indication: TARDIVE DYSKINESIA
     Route: 048
     Dates: start: 20171108, end: 20171115
  5. BUSPIRONE [Concomitant]
     Active Substance: BUSPIRONE HYDROCHLORIDE
     Indication: ANXIETY
  6. CLONIDINE. [Concomitant]
     Active Substance: CLONIDINE
  7. LEXAPRO [Concomitant]
     Active Substance: ESCITALOPRAM OXALATE

REACTIONS (3)
  - Spinal cord injury [Unknown]
  - Small intestinal resection [Unknown]
  - Gun shot wound [Unknown]

NARRATIVE: CASE EVENT DATE: 20190418
